FAERS Safety Report 9115047 (Version 1)
Quarter: 2013Q1

REPORT INFORMATION
  Report Type: Spontaneous
  Country: JP (occurrence: JP)
  Receive Date: 20130128
  Receipt Date: 20130128
  Transmission Date: 20140127
  Serious: Yes (Hospitalization, Other)
  Sender: FDA-Public Use
  Company Number: JP-ELI_LILLY_AND_COMPANY-JP201211000881

PATIENT
  Age: 76 Year
  Sex: Female

DRUGS (2)
  1. FORTEO [Suspect]
     Dosage: UNK
     Route: 058
     Dates: end: 20120924
  2. FORTEO [Suspect]
     Dosage: UNK
     Route: 058
     Dates: start: 20121012

REACTIONS (3)
  - Angina pectoris [Unknown]
  - Thrombosis [Not Recovered/Not Resolved]
  - Renal pain [Recovered/Resolved]
